FAERS Safety Report 17371693 (Version 7)
Quarter: 2021Q4

REPORT INFORMATION
  Report Type: Spontaneous
  Country: CZ (occurrence: CZ)
  Receive Date: 20200205
  Receipt Date: 20211025
  Transmission Date: 20220303
  Serious: Yes (Hospitalization, Other)
  Sender: FDA-Public Use
  Company Number: CZ-CELLTRION INC.-2020CZ017692

PATIENT

DRUGS (45)
  1. RITUXIMAB [Suspect]
     Active Substance: RITUXIMAB
     Indication: Mantle cell lymphoma stage IV
     Dosage: INITIATED RESCUE THERAPY WITH PLATINUM REGIMEN (R-ICE; RITUXIMAB, IPHOSPHAMIDE, CARBOPLATIN, ETOPOSI
  2. RITUXIMAB [Suspect]
     Active Substance: RITUXIMAB
     Dosage: COMPLETED RESCUE THERAPY BY THE ADMINISTRATION OF THE 3RD CYCLE OF RICE
     Dates: start: 201902
  3. RITUXIMAB [Suspect]
     Active Substance: RITUXIMAB
     Dosage: GIVEN THIRD LINE TREATMENT WITH A COMBINATION OF RITUXIMAB AND BENDAMUSTINE (R-B REGIMEN)
     Route: 065
  4. RITUXIMAB [Suspect]
     Active Substance: RITUXIMAB
     Dosage: SECOND CYCLE OF R-B
     Route: 065
     Dates: start: 201901
  5. RITUXIMAB [Suspect]
     Active Substance: RITUXIMAB
     Dosage: HIGH DOSE CYTARABINE (HD ARAC) WITH RITUXIMAB
     Route: 065
     Dates: start: 201902
  6. RITUXIMAB [Suspect]
     Active Substance: RITUXIMAB
     Dosage: UNK, CYCLIC
     Route: 065
  7. RITUXIMAB [Suspect]
     Active Substance: RITUXIMAB
     Dosage: UNK
     Route: 065
     Dates: start: 201803
  8. RITUXIMAB [Suspect]
     Active Substance: RITUXIMAB
     Dosage: 375 MG/M2 (EVERY WEEK)
     Route: 065
     Dates: start: 201712
  9. RITUXIMAB [Suspect]
     Active Substance: RITUXIMAB
     Dosage: UNK
     Route: 065
     Dates: start: 201902
  10. RITUXIMAB [Suspect]
     Active Substance: RITUXIMAB
     Dosage: 4 DOSES OF RITUXIMAB 385MG/M2 IN WEEKLY INTERVALS
     Route: 065
  11. RITUXIMAB [Suspect]
     Active Substance: RITUXIMAB
     Dosage: NORDIC PROTOCOL (3 CYCLES R-MAXICHOP ALTERNATING WITH 3 CYCLES OF RITUXIMAB WITH HIGH DOSE CYTARABIN
     Route: 065
  12. RITUXIMAB [Suspect]
     Active Substance: RITUXIMAB
     Dosage: UNK
     Route: 065
     Dates: start: 201901
  13. CARMUSTINE [Suspect]
     Active Substance: CARMUSTINE
     Indication: Mantle cell lymphoma
     Dosage: UNK
     Route: 065
  14. ETOPOSIDE [Suspect]
     Active Substance: ETOPOSIDE
     Indication: Mantle cell lymphoma
     Dosage: INITIATE RESCUE THERAPY WITH PLATINUM REGIMEN (R-ICE; RITUXIMAB, IPHOSPHAMIDE, CARBOPLATIN, ETOPOSID
     Route: 065
  15. ETOPOSIDE [Suspect]
     Active Substance: ETOPOSIDE
     Dosage: COMPLETED RESCUE THERAPY BY THE ADMINISTRATION OF THE 3RD CYCLE OF RICE
     Route: 065
  16. ETOPOSIDE [Suspect]
     Active Substance: ETOPOSIDE
     Dosage: UNK, CYCLIC
     Route: 065
  17. ETOPOSIDE [Suspect]
     Active Substance: ETOPOSIDE
     Dosage: UNK
     Route: 065
  18. DOXORUBICIN HYDROCHLORIDE [Suspect]
     Active Substance: DOXORUBICIN HYDROCHLORIDE
     Indication: Mantle cell lymphoma
     Dosage: UNK
     Route: 065
  19. CYTARABINE [Suspect]
     Active Substance: CYTARABINE
     Indication: Mantle cell lymphoma
     Dosage: HIGH DOSE CYTARABINE (HD ARAC) WITH RITUXIMAB
     Route: 065
     Dates: start: 201902
  20. CYTARABINE [Suspect]
     Active Substance: CYTARABINE
     Dosage: FOLLOWING CYCLE OF HD ARAC WAS FORTIFIED WITH BENDAMUSTINE (SO CALLED R-BAC)
     Route: 065
  21. CYTARABINE [Suspect]
     Active Substance: CYTARABINE
     Dosage: TWO CYCLES OF CNS PENETRATING CHEMOTHERAPY (MTX AND ARAC)
     Route: 065
  22. CYTARABINE [Suspect]
     Active Substance: CYTARABINE
     Dosage: UNK
     Route: 065
  23. CYTARABINE [Suspect]
     Active Substance: CYTARABINE
     Dosage: UNK
     Route: 065
     Dates: start: 201902
  24. CYTARABINE [Suspect]
     Active Substance: CYTARABINE
     Dosage: HIGH DOSE
     Route: 065
     Dates: start: 201902
  25. CYCLOPHOSPHAMIDE [Suspect]
     Active Substance: CYCLOPHOSPHAMIDE
     Indication: Mantle cell lymphoma
     Dosage: UNK
     Route: 065
  26. PREDNISONE [Suspect]
     Active Substance: PREDNISONE
     Indication: Mantle cell lymphoma
     Dosage: UNK
     Route: 065
  27. VINCRISTINE [Suspect]
     Active Substance: VINCRISTINE
     Indication: Mantle cell lymphoma
     Dosage: UNK
     Route: 065
  28. BENDAMUSTINE [Suspect]
     Active Substance: BENDAMUSTINE
     Indication: Mantle cell lymphoma
     Dosage: INITIATED THIRD LINE TREATMENT WITH A COMBINATION OF RITUXIMAB AND BENDAMUSTINE (R-B REGIMEN).
     Route: 065
  29. BENDAMUSTINE [Suspect]
     Active Substance: BENDAMUSTINE
     Dosage: SECOND CYCLE OF R-B
     Route: 065
     Dates: start: 201901
  30. BENDAMUSTINE [Suspect]
     Active Substance: BENDAMUSTINE
     Dosage: FOLLOWING CYCLE OF HD ARAC WAS THUS FORTIFIED WITH BENDAMUSTINE (SO CALLED R-BAC)
     Route: 065
  31. BENDAMUSTINE [Suspect]
     Active Substance: BENDAMUSTINE
     Dosage: UNK
     Route: 065
  32. BENDAMUSTINE [Suspect]
     Active Substance: BENDAMUSTINE
     Dosage: UNK
     Route: 065
     Dates: start: 201902
  33. METHOTREXATE [Suspect]
     Active Substance: METHOTREXATE
     Indication: Mantle cell lymphoma
     Dosage: ONE CYCLE OF HIGH DOSE METHOTREXATE (HD MTX)
     Route: 065
     Dates: start: 201901
  34. METHOTREXATE [Suspect]
     Active Substance: METHOTREXATE
     Indication: Mantle cell lymphoma stage IV
     Dosage: TWO CYCLES OF CNS PENETRATING CHEMOTHERAPY (MTX AND ARAC)
     Route: 065
  35. METHOTREXATE [Suspect]
     Active Substance: METHOTREXATE
     Dosage: UNK
     Route: 065
     Dates: start: 201902
  36. IFOSFAMIDE [Suspect]
     Active Substance: IFOSFAMIDE
     Indication: Mantle cell lymphoma
     Dosage: INITIATE RESCUE THERAPY WITH PLATINUM REGIMEN (R-ICE; RITUXIMAB, IPHOSPHAMIDE, CARBOPLATIN, ETOPOSID
     Route: 065
  37. IFOSFAMIDE [Suspect]
     Active Substance: IFOSFAMIDE
     Dosage: COMPLETED RESCUE THERAPY BY THE ADMINISTRATION OF THE 3RD CYCLE OF RICE
     Route: 065
  38. IFOSFAMIDE [Suspect]
     Active Substance: IFOSFAMIDE
     Dosage: UNK, CYCLIC
     Route: 065
  39. CARBOPLATIN [Suspect]
     Active Substance: CARBOPLATIN
     Indication: Mantle cell lymphoma
     Dosage: INITIATE RESCUE THERAPY WITH PLATINUM REGIMEN (R-ICE; RITUXIMAB, IPHOSPHAMIDE, CARBOPLATIN, ETOPOSID
  40. CARBOPLATIN [Suspect]
     Active Substance: CARBOPLATIN
     Dosage: COMPLETED RESCUE THERAPY BY THE ADMINISTRATION OF THE 3RD CYCLE OF RICE
  41. CARBOPLATIN [Suspect]
     Active Substance: CARBOPLATIN
     Dosage: UNK, CYCLIC
     Route: 065
  42. IBRUTINIB [Concomitant]
     Active Substance: IBRUTINIB
     Dosage: UNK
     Route: 065
     Dates: start: 201804
  43. IBRUTINIB [Concomitant]
     Active Substance: IBRUTINIB
     Dosage: UNK
     Route: 065
     Dates: start: 201905
  44. METHOTREXATE [Concomitant]
     Active Substance: METHOTREXATE
     Indication: Mantle cell lymphoma
     Dosage: UNK
     Route: 065
     Dates: start: 201901
  45. MELPHALAN [Concomitant]
     Active Substance: MELPHALAN
     Indication: Mantle cell lymphoma
     Dosage: UNK
     Route: 065

REACTIONS (15)
  - Lymphoma [Unknown]
  - Disease progression [Unknown]
  - Dysarthria [Unknown]
  - Hemiparesis [Unknown]
  - Metastases to central nervous system [Unknown]
  - Headache [Unknown]
  - Malignant neoplasm progression [Unknown]
  - Mantle cell lymphoma [Unknown]
  - Mantle cell lymphoma [Unknown]
  - Lymphadenopathy [Unknown]
  - Renal failure [Unknown]
  - Neutropenia [Unknown]
  - Product use in unapproved indication [Unknown]
  - Drug ineffective [Unknown]
  - Off label use [Unknown]

NARRATIVE: CASE EVENT DATE: 20180501
